FAERS Safety Report 13521453 (Version 1)
Quarter: 2017Q2

REPORT INFORMATION
  Report Type: Report from Study
  Country: TN (occurrence: TN)
  Receive Date: 20170508
  Receipt Date: 20170508
  Transmission Date: 20170830
  Serious: Yes (Hospitalization)
  Sender: FDA-Public Use
  Company Number: TN-BION-006273

PATIENT
  Sex: Male

DRUGS (1)
  1. VALPROIC ACID UNKNOWN PRODUCT [Suspect]
     Active Substance: VALPROIC ACID
     Indication: EPILEPSY

REACTIONS (3)
  - Rash maculo-papular [Recovered/Resolved]
  - Drug cross-reactivity [Unknown]
  - Type IV hypersensitivity reaction [Recovered/Resolved]
